FAERS Safety Report 22265735 (Version 1)
Quarter: 2023Q2

REPORT INFORMATION
  Report Type: Spontaneous
  Country: US (occurrence: US)
  Receive Date: 20230428
  Receipt Date: 20230428
  Transmission Date: 20230721
  Serious: No
  Sender: FDA-Public Use
  Company Number: US-MYOVANT SCIENCES GMBH-2023MYSCI0400160

PATIENT
  Age: 75 Year
  Sex: Male

DRUGS (12)
  1. ORGOVYX [Suspect]
     Active Substance: RELUGOLIX
     Indication: Prostate cancer
     Dosage: 360 MILLIGRAM, ONE TIME DOSE
     Route: 048
  2. ORGOVYX [Suspect]
     Active Substance: RELUGOLIX
     Dosage: 120 MILLIGRAM, QD
     Route: 048
     Dates: end: 20230402
  3. CARBIDOPA LEVODOPA [Concomitant]
     Active Substance: CARBIDOPA\LEVODOPA
     Indication: Parkinson^s disease
     Dosage: CARBIDOPA 25 MILLIGRAMS / LEVODOPA 250 MILLIGRAMS, 2/DAY
     Route: 065
     Dates: start: 2004
  4. CARBIDOPA LEVODOPA [Concomitant]
     Active Substance: CARBIDOPA\LEVODOPA
     Indication: Parkinson^s disease
     Dosage: CARBIDOPA EXTENDED RELEASE (ER) 50 MILLIGRAMS-LEVODOPA 200 MILLIGRAMS ER, 1/DAY
     Route: 065
  5. OMEPRAZOLE [Concomitant]
     Active Substance: OMEPRAZOLE
     Indication: Gastrooesophageal reflux disease
     Dosage: 20 MILLIGRAM, 3 TIMES/WK
     Route: 065
  6. PROBENECID [Concomitant]
     Active Substance: PROBENECID
     Indication: Gout
     Dosage: 500 MILLIGRAM, QD
     Route: 065
  7. ROSUVASTATIN [Concomitant]
     Active Substance: ROSUVASTATIN
     Indication: Hyperlipidaemia
     Dosage: 10 MILLIGRAM, QD
     Route: 065
     Dates: start: 2003
  8. ROPINIROLE [Concomitant]
     Active Substance: ROPINIROLE
     Indication: Restless legs syndrome
     Dosage: 2 MILLIGRAM, TID
     Route: 065
     Dates: start: 2003
  9. SERTRALINE [Concomitant]
     Active Substance: SERTRALINE HYDROCHLORIDE
     Indication: Depression
     Dosage: 100 MILLIGRAM, QD
     Route: 065
     Dates: start: 1998
  10. ALLOPURINOL [Concomitant]
     Active Substance: ALLOPURINOL
     Indication: Gout
     Dosage: 50 MILLIGRAM, QD
     Route: 048
  11. VITAMIN D2 [Concomitant]
     Active Substance: ERGOCALCIFEROL
     Indication: Blood calcium decreased
     Dosage: 1.25 MILLIGRAM, QWK
     Route: 065
  12. VITAMIN B [Concomitant]
     Active Substance: VITAMIN B
     Indication: Vitamin B complex deficiency
     Dosage: 1000 MICROGRAM, QD
     Route: 065

REACTIONS (1)
  - Therapy interrupted [Unknown]

NARRATIVE: CASE EVENT DATE: 20230403
